FAERS Safety Report 8285553 (Version 3)
Quarter: 2013Q3

REPORT INFORMATION
  Report Type: Report from Study
  Country: CA (occurrence: CA)
  Receive Date: 20111213
  Receipt Date: 20130823
  Transmission Date: 20140515
  Serious: Yes (Other)
  Sender: FDA-Public Use
  Company Number: CA-ROCHE-1019449

PATIENT
  Age: 63 Year
  Sex: Female
  Weight: 93.07 kg

DRUGS (8)
  1. RITUXIMAB [Suspect]
     Indication: RHEUMATOID ARTHRITIS
     Dosage: DAY1 AND DAY 15, LAST DOSE PRIOR TO SAE WAS ON 24/SEP/2012 AND 09/OCT/2012
     Route: 042
     Dates: start: 20110428
  2. CELEBREX [Concomitant]
     Route: 065
  3. METHOTREXATE [Concomitant]
     Indication: RHEUMATOID ARTHRITIS
     Route: 065
  4. FOLIC ACID [Concomitant]
     Route: 065
  5. RAMIPRIL [Concomitant]
     Indication: HYPERTENSION
     Route: 065
  6. SULFASALAZINE [Concomitant]
     Indication: RHEUMATOID ARTHRITIS
     Route: 065
  7. GLUCAMINOL [Concomitant]
     Indication: DIABETES MELLITUS
     Route: 065
  8. TYLENOL #3 (CANADA) [Concomitant]
     Indication: PAIN
     Route: 065

REACTIONS (4)
  - Macular degeneration [Unknown]
  - Nasopharyngitis [Recovering/Resolving]
  - Blood glucose increased [Recovered/Resolved]
  - Blood cholesterol increased [Recovering/Resolving]
